FAERS Safety Report 9810642 (Version 1)
Quarter: 2014Q1

REPORT INFORMATION
  Report Type: Spontaneous
  Country: US (occurrence: US)
  Receive Date: 20140110
  Receipt Date: 20140110
  Transmission Date: 20141002
  Serious: Yes (Other)
  Sender: FDA-Public Use
  Company Number: US-SANOFI-AVENTIS-2013SA090507

PATIENT
  Age: 68 Year
  Sex: Male

DRUGS (5)
  1. PLAVIX [Suspect]
     Route: 065
  2. METFORMIN HYDROCHLORIDE [Concomitant]
  3. CARVEDILOL [Concomitant]
  4. ATORVASTATIN CALCIUM [Concomitant]
  5. TRAVATAN [Concomitant]

REACTIONS (1)
  - Gastrointestinal haemorrhage [Unknown]
